FAERS Safety Report 5748754-6 (Version None)
Quarter: 2008Q2

REPORT INFORMATION
  Report Type: 
  Country: None (occurrence: None)
  Receive Date: 20080521
  Receipt Date: 20080505
  Transmission Date: 20081010
  Serious: Yes (Hospitalization)
  Sender: FDA-Public Use
  Company Number: 8028121

PATIENT
  Age: 11 Year
  Sex: Female
  Weight: 33 kg

DRUGS (2)
  1. METHYLPHENIDATE HCL [Suspect]
     Indication: DISTURBANCE IN ATTENTION
     Dosage: 30 MG /D
  2. METHYLPHENIDATE HCL [Suspect]
     Indication: DISTURBANCE IN ATTENTION
     Dosage: 20 MG /D

REACTIONS (5)
  - ASOCIAL BEHAVIOUR [None]
  - FEAR [None]
  - IRRITABILITY [None]
  - NIGHTMARE [None]
  - PERSONALITY DISORDER [None]
